FAERS Safety Report 7779298-8 (Version None)
Quarter: 2011Q3

REPORT INFORMATION
  Report Type: 
  Country: None (occurrence: None)
  Receive Date: 20110926
  Receipt Date: 20110916
  Transmission Date: 20111222
  Serious: Yes (Other)
  Sender: FDA-Public Use
  Company Number: US-ASTRAZENECA-2011SE54547

PATIENT
  Age: 58 Year
  Sex: Female
  Weight: 90.7 kg

DRUGS (6)
  1. SEROQUEL [Suspect]
     Indication: BIPOLAR DISORDER
     Route: 048
  2. WARFARIN SODIUM [Concomitant]
     Indication: BIPOLAR DISORDER
  3. XANAX [Concomitant]
     Indication: BIPOLAR DISORDER
  4. SEROQUEL [Suspect]
     Indication: ANXIETY
     Route: 048
  5. TRAZAVONE [Concomitant]
     Indication: BIPOLAR DISORDER
  6. SEROQUEL [Suspect]
     Indication: MAJOR DEPRESSION
     Route: 048

REACTIONS (7)
  - SINUS DISORDER [None]
  - DRUG DOSE OMISSION [None]
  - PULMONARY EMBOLISM [None]
  - HEADACHE [None]
  - INSOMNIA [None]
  - COUGH [None]
  - SNEEZING [None]
